FAERS Safety Report 5071843-9 (Version None)
Quarter: 2006Q3

REPORT INFORMATION
  Report Type: 
  Country: None (occurrence: None)
  Receive Date: 20060801
  Receipt Date: 20060725
  Transmission Date: 20061208
  Serious: Yes (Hospitalization)
  Sender: FDA-Public Use
  Company Number: B0430464A

PATIENT
  Age: 65 Year
  Sex: Female

DRUGS (2)
  1. AMOXICILLIN TRIHYDRATE [Suspect]
     Indication: HELICOBACTER INFECTION
     Dosage: 2 CAPSULE / FOUR TIMES PER DAY / ORAL
     Route: 048
     Dates: start: 20060124, end: 20060127
  2. RABEPRAZOLE SODIUM [Concomitant]

REACTIONS (4)
  - C-REACTIVE PROTEIN INCREASED [None]
  - CLOSTRIDIUM DIFFICILE COLITIS [None]
  - ENTEROCOLITIS HAEMORRHAGIC [None]
  - WHITE BLOOD CELL COUNT INCREASED [None]
